FAERS Safety Report 10456317 (Version 1)
Quarter: 2014Q3

REPORT INFORMATION
  Report Type: Spontaneous
  Country: DE (occurrence: DE)
  Receive Date: 20140916
  Receipt Date: 20140916
  Transmission Date: 20150326
  Serious: Yes (Hospitalization, Other)
  Sender: FDA-Public Use
  Company Number: DE-AMGEN-DEUSP2014069186

PATIENT
  Age: 75 Year
  Sex: Female

DRUGS (9)
  1. XGEVA [Suspect]
     Active Substance: DENOSUMAB
     Indication: BREAST CANCER
     Dosage: 120 MG, Q4WK
     Route: 058
     Dates: start: 201302
  2. LETROZOLE. [Concomitant]
     Active Substance: LETROZOLE
     Dosage: UNK
     Dates: start: 201305, end: 201401
  3. XELODA [Concomitant]
     Active Substance: CAPECITABINE
     Indication: THROMBOCYTOPENIA
     Dosage: 1000 MG, BID
     Dates: start: 201402
  4. GABAPENTIN. [Concomitant]
     Active Substance: GABAPENTIN
     Dosage: UNK
  5. VITAMIN D                          /00107901/ [Concomitant]
     Active Substance: ERGOCALCIFEROL
     Dosage: 400 IU, UNK
     Dates: start: 201302
  6. CAELYX [Concomitant]
     Active Substance: DOXORUBICIN HYDROCHLORIDE
     Dosage: UNK
     Dates: start: 201301, end: 201304
  7. LYRICA [Concomitant]
     Active Substance: PREGABALIN
     Dosage: UNK
  8. CALCIUM [Concomitant]
     Active Substance: CALCIUM
     Dosage: 600 MG, QD
     Dates: start: 201302
  9. MORPHINE [Concomitant]
     Active Substance: MORPHINE
     Dosage: UNK

REACTIONS (28)
  - Type 2 diabetes mellitus [Unknown]
  - Metastatic neoplasm [Unknown]
  - Pneumonia [Unknown]
  - Overdose [Unknown]
  - Dementia [Unknown]
  - Hypertension [Unknown]
  - Osteochondrosis [Unknown]
  - Goitre [Unknown]
  - Osteolysis [Unknown]
  - Mucous membrane disorder [Unknown]
  - Metastases to liver [Unknown]
  - Disorientation [Unknown]
  - Vasculitis [Unknown]
  - Thrombocytopenia [Unknown]
  - Muscle contractions involuntary [Unknown]
  - Renal failure [Unknown]
  - Metastases to pleura [Unknown]
  - Intervertebral disc protrusion [Unknown]
  - Adenoma benign [Unknown]
  - Chronic gastritis [Unknown]
  - Pallor [Unknown]
  - Skin turgor decreased [Unknown]
  - Infection [Unknown]
  - Rash [Recovering/Resolving]
  - Polyarthritis [Unknown]
  - Confusional state [Unknown]
  - General physical health deterioration [Unknown]
  - Meningeal disorder [Unknown]

NARRATIVE: CASE EVENT DATE: 201407
